FAERS Safety Report 5466652-2 (Version None)
Quarter: 2007Q3

REPORT INFORMATION
  Report Type: 
  Country: None (occurrence: None)
  Receive Date: 20070921
  Receipt Date: 20070921
  Transmission Date: 20080115
  Serious: Yes (Other)
  Sender: FDA-Public Use
  Company Number: None

PATIENT
  Age: 84 Year
  Sex: Female
  Weight: 81.6475 kg

DRUGS (1)
  1. XALATAN [Suspect]
     Dosage: INSTILL 1 GTT QHS
     Dates: end: 20070615

REACTIONS (2)
  - EYE IRRITATION [None]
  - PHARMACEUTICAL PRODUCT COMPLAINT [None]
